FAERS Safety Report 6290645-9 (Version None)
Quarter: 2009Q3

REPORT INFORMATION
  Report Type: 
  Country: None (occurrence: None)
  Receive Date: 20090730
  Receipt Date: 20090718
  Transmission Date: 20100115
  Serious: Yes (Other)
  Sender: FDA-Public Use
  Company Number: PHHY2008CO14260

PATIENT
  Sex: Female

DRUGS (2)
  1. DIOVAN [Suspect]
     Indication: HYPERTENSION
     Dosage: 1 TABLET 80 MG
     Route: 048
     Dates: start: 20060101
  2. DIOVAN [Suspect]
     Dosage: 160 MG, DAILY

REACTIONS (1)
  - ARRHYTHMIA [None]
